FAERS Safety Report 9113180 (Version 1)
Quarter: 2013Q1

REPORT INFORMATION
  Report Type: Spontaneous
  Country: US (occurrence: US)
  Receive Date: 20130211
  Receipt Date: 20130211
  Transmission Date: 20140127
  Serious: Yes (Death, Other)
  Sender: FDA-Public Use
  Company Number: US-ASTRAZENECA-2013SE08663

PATIENT
  Sex: Male

DRUGS (3)
  1. BRILINTA [Suspect]
     Indication: CORONARY ARTERIAL STENT INSERTION
     Route: 048
  2. PLAVIX [Suspect]
     Route: 065
  3. TICLID [Suspect]
     Route: 065

REACTIONS (3)
  - Cardiac arrest [Fatal]
  - Dyspnoea [Unknown]
  - Drug hypersensitivity [Unknown]
